FAERS Safety Report 5966009-1 (Version None)
Quarter: 2008Q4

REPORT INFORMATION
  Report Type: 
  Country: None (occurrence: None)
  Receive Date: 20081125
  Receipt Date: 20081118
  Transmission Date: 20090506
  Serious: Yes (Other)
  Sender: FDA-Public Use
  Company Number: US-JNJFOC-20080906529

PATIENT
  Sex: Male

DRUGS (1)
  1. REMICADE [Suspect]
     Indication: MACULAR DEGENERATION
     Route: 031

REACTIONS (3)
  - EYE INFLAMMATION [None]
  - INTRAOCULAR PRESSURE INCREASED [None]
  - VISUAL ACUITY REDUCED [None]
